FAERS Safety Report 7634257-0 (Version None)
Quarter: 2011Q3

REPORT INFORMATION
  Report Type: 
  Country: None (occurrence: None)
  Receive Date: 20110725
  Receipt Date: 20110715
  Transmission Date: 20111222
  Serious: Yes (Other)
  Sender: FDA-Public Use
  Company Number: BR-ASTRAZENECA-2011SE42799

PATIENT
  Age: 75 Year
  Sex: Female
  Weight: 45 kg

DRUGS (3)
  1. OMEPRAZOLE [Suspect]
     Indication: GASTRITIS
     Route: 048
     Dates: start: 20080101
  2. UNKNOWN [Concomitant]
     Indication: THYROID DISORDER
     Route: 048
  3. OMEPRAZOLE [Suspect]
     Indication: GASTROOESOPHAGEAL REFLUX DISEASE
     Route: 048
     Dates: start: 20080101

REACTIONS (6)
  - BREATH ODOUR [None]
  - TORTICOLLIS [None]
  - MOUTH ULCERATION [None]
  - GASTRIC POLYPS [None]
  - PHARYNGEAL ULCERATION [None]
  - DYSGEUSIA [None]
